FAERS Safety Report 4973013-9 (Version None)
Quarter: 2006Q2

REPORT INFORMATION
  Report Type: 
  Country: None (occurrence: None)
  Receive Date: 20060414
  Receipt Date: 20060405
  Transmission Date: 20061013
  Serious: Yes (Life-Threatening, Hospitalization, Congenital Anomaly)
  Sender: FDA-Public Use
  Company Number: DE-JNJFOC-2006020064

PATIENT
  Sex: Male

DRUGS (2)
  1. LAMICTAL [Suspect]
  2. TOPAMAX [Suspect]

REACTIONS (12)
  - ATRIOVENTRICULAR SEPTAL DEFECT [None]
  - CAESAREAN SECTION [None]
  - CONGENITAL ANOMALY [None]
  - DRUG EXPOSURE DURING PREGNANCY [None]
  - HEART DISEASE CONGENITAL [None]
  - KIDNEY MALFORMATION [None]
  - LIMB MALFORMATION [None]
  - OESOPHAGEAL ATRESIA [None]
  - PREMATURE BABY [None]
  - SPINE MALFORMATION [None]
  - TRACHEAL STENOSIS [None]
  - TRACHEO-OESOPHAGEAL FISTULA [None]
